FAERS Safety Report 5588419-7 (Version None)
Quarter: 2008Q1

REPORT INFORMATION
  Report Type: 
  Country: None (occurrence: None)
  Receive Date: 20080111
  Receipt Date: 20071211
  Transmission Date: 20080703
  Serious: No
  Sender: FDA-Public Use
  Company Number: A0698342A

PATIENT
  Age: 43 Year
  Sex: Female

DRUGS (7)
  1. TYKERB [Suspect]
     Dosage: 250MG VARIABLE DOSE
     Route: 048
     Dates: start: 20071201
  2. XELODA [Concomitant]
  3. SPIRONOLACTONE [Concomitant]
  4. TAMOXIFEN [Concomitant]
  5. UNKNOWN MEDICATION [Concomitant]
  6. UNKNOWN MEDICATION [Concomitant]
  7. MORPHINE [Concomitant]

REACTIONS (2)
  - PRURITUS [None]
  - RASH [None]
